FAERS Safety Report 18065298 (Version 4)
Quarter: 2020Q4

REPORT INFORMATION
  Report Type: Spontaneous
  Country: CL (occurrence: EC)
  Receive Date: 20200724
  Receipt Date: 20201222
  Transmission Date: 20210113
  Serious: Yes (Other)
  Sender: FDA-Public Use
  Company Number: EC-ASTELLAS-2020US024173

PATIENT
  Age: 77 Year
  Sex: Male

DRUGS (2)
  1. XTANDI [Suspect]
     Active Substance: ENZALUTAMIDE
     Route: 048
     Dates: start: 201906
  2. XTANDI [Suspect]
     Active Substance: ENZALUTAMIDE
     Indication: PROSTATE CANCER
     Route: 048
     Dates: start: 2018

REACTIONS (5)
  - Haemorrhage urinary tract [Unknown]
  - Anxiety [Unknown]
  - Malignant urinary tract obstruction [Not Recovered/Not Resolved]
  - Pelvic pain [Unknown]
  - Blood pressure increased [Recovered/Resolved]

NARRATIVE: CASE EVENT DATE: 2020
